FAERS Safety Report 8351094-2 (Version None)
Quarter: 2012Q2

REPORT INFORMATION
  Report Type: 
  Country: None (occurrence: None)
  Receive Date: 20120510
  Receipt Date: 20120507
  Transmission Date: 20120825
  Serious: Yes (Hospitalization)
  Sender: FDA-Public Use
  Company Number: PHHY2012PL038738

PATIENT
  Age: 52 Year
  Sex: Female

DRUGS (3)
  1. RIBAVIRIN [Concomitant]
     Dosage: 1.2 G/DAY
  2. METHIMAZOLE [Suspect]
     Indication: HYPERTHYROIDISM
     Dosage: 20 MG/DAY
  3. PEGINTERFERON ALFA-2B [Suspect]
     Indication: HEPATITIS C
     Dosage: 150 UG, QD

REACTIONS (12)
  - TONSILLITIS BACTERIAL [None]
  - AGRANULOCYTOSIS [None]
  - PYREXIA [None]
  - LYMPHADENOPATHY [None]
  - OROPHARYNGEAL PAIN [None]
  - CHILLS [None]
  - DYSPHAGIA [None]
  - MOUTH ULCERATION [None]
  - ENTEROCOCCUS TEST POSITIVE [None]
  - PALLOR [None]
  - LYMPH NODE PAIN [None]
  - TRISMUS [None]
